FAERS Safety Report 4717961-3 (Version None)
Quarter: 2005Q3

REPORT INFORMATION
  Report Type: 
  Country: None (occurrence: None)
  Receive Date: 20050718
  Receipt Date: 20050127
  Transmission Date: 20060218
  Serious: No
  Sender: FDA-Public Use
  Company Number: 2005000205

PATIENT
  Sex: Female

DRUGS (1)
  1. TARCEVA [Suspect]
     Dosage: 150 MG (QD), ORAL
     Route: 048
     Dates: start: 20050112

REACTIONS (4)
  - DIARRHOEA [None]
  - NASAL DISCOMFORT [None]
  - NASAL MUCOSAL DISORDER [None]
  - RASH [None]
